FAERS Safety Report 6964155-7 (Version None)
Quarter: 2010Q3

REPORT INFORMATION
  Report Type: 
  Country: None (occurrence: None)
  Receive Date: 20100903
  Receipt Date: 20100826
  Transmission Date: 20110219
  Serious: Yes (Hospitalization)
  Sender: FDA-Public Use
  Company Number: AT-BIOGENIDEC-2010BI022021

PATIENT
  Age: 22 Year
  Sex: Female

DRUGS (3)
  1. TYSABRI [Suspect]
     Indication: MULTIPLE SCLEROSIS
     Route: 042
     Dates: start: 20090601
  2. MIRTABENE [Concomitant]
     Indication: DEPRESSION
     Route: 048
  3. AMITRIPTYLINE HCL [Concomitant]
     Indication: DEPRESSION
     Route: 048

REACTIONS (2)
  - CARCINOID TUMOUR OF THE APPENDIX [None]
  - IMPAIRED HEALING [None]
